FAERS Safety Report 5304876-5 (Version None)
Quarter: 2007Q2

REPORT INFORMATION
  Report Type: 
  Country: None (occurrence: None)
  Receive Date: 20070423
  Receipt Date: 20070412
  Transmission Date: 20071010
  Serious: Yes (Other)
  Sender: FDA-Public Use
  Company Number: GB-PFIZER INC-2007030434

PATIENT
  Age: 38 Year

DRUGS (1)
  1. DEPO-PROVERA [Suspect]
     Indication: ENDOMETRITIS
     Route: 030
     Dates: start: 20070129, end: 20070129

REACTIONS (2)
  - MUSCLE SPASMS [None]
  - TENDONITIS [None]
